FAERS Safety Report 8884789 (Version 2)
Quarter: 2012Q4

REPORT INFORMATION
  Report Type: 
  Country: JP (occurrence: JP)
  Receive Date: 20121102
  Receipt Date: 20121107
  Transmission Date: 20130627
  Serious: Yes (Hospitalization, Other)
  Sender: FDA-Public Use
  Company Number: JP-PFIZER INC-2012271183

PATIENT
  Age: 69 Year
  Sex: Female
  Weight: 56.6 kg

DRUGS (17)
  1. LYRICA [Suspect]
     Indication: PAIN
     Dosage: 75 mg, 2x/day
     Route: 048
     Dates: start: 20120821, end: 20120822
  2. LYRICA [Suspect]
     Indication: BACK PAIN
  3. ABILIFY [Suspect]
     Indication: BIPOLAR DISORDER
     Dosage: 18 mg, 1x/day
     Route: 048
     Dates: start: 20120820, end: 20120822
  4. MYSLEE [Concomitant]
     Indication: SLEEP LOSS
     Dosage: 5 mg, 1x/day
     Route: 048
     Dates: start: 20120821, end: 20120822
  5. HORIZON [Concomitant]
     Indication: UNREST
     Dosage: 15 mg, 3x/day
     Route: 048
     Dates: start: 20120816, end: 20120822
  6. RIVOTRIL [Concomitant]
     Indication: UNREST
     Dosage: 1.0 mg, 2x/day
     Route: 048
     Dates: start: 20120723, end: 20120819
  7. RIVOTRIL [Concomitant]
     Dosage: 1.5 mg, 3x/day
     Route: 048
     Dates: start: 20120820, end: 20120822
  8. ARTANE [Concomitant]
     Indication: UNREST
     Dosage: 4 mg, 2x/day
     Route: 048
     Dates: start: 20120820, end: 20120822
  9. DEPAKENE [Concomitant]
     Indication: BIPOLAR DISORDER
     Dosage: 600 mg, 2x/day
     Route: 048
     Dates: start: 20120815, end: 20120822
  10. BROTIZOLAM [Concomitant]
     Indication: SLEEP LOSS
     Dosage: 0.25 mg, 1x/day
     Route: 048
     Dates: start: 20120820, end: 20120822
  11. ZYPREXA [Concomitant]
     Indication: BIPOLAR DISORDER
     Dosage: 5 mg, 1x/day
     Route: 048
     Dates: start: 20120528, end: 20120819
  12. LUVOX [Concomitant]
     Indication: BIPOLAR DISORDER
     Dosage: 50 mg, 2x/day
     Route: 048
     Dates: start: 20120625, end: 20120709
  13. LUVOX [Concomitant]
     Dosage: 75 mg, 2x/day
     Route: 048
     Dates: start: 20120709, end: 20120814
  14. CERCINE [Concomitant]
     Indication: UNREST
     Dosage: 10 mg, 1x/day
     Route: 030
     Dates: start: 20120815, end: 20120816
  15. CERCINE [Concomitant]
     Dosage: 20 mg, 2x/day
     Route: 030
     Dates: start: 20120818, end: 20120818
  16. CERCINE [Concomitant]
     Dosage: 10 mg, 1x/day
     Route: 030
     Dates: start: 20120820, end: 20120820
  17. LOXONIN [Concomitant]
     Route: 048

REACTIONS (2)
  - Dysarthria [Recovered/Resolved]
  - Dysstasia [Recovered/Resolved]
